FAERS Safety Report 15110348 (Version 1)
Quarter: 2018Q3

REPORT INFORMATION
  Report Type: Spontaneous
  Country: GT (occurrence: GT)
  Receive Date: 20180705
  Receipt Date: 20180705
  Transmission Date: 20181010
  Serious: Yes (Other)
  Sender: FDA-Public Use
  Company Number: GT-GLAXOSMITHKLINE-GT2018GSK114964

PATIENT
  Age: 17 Month
  Sex: Female

DRUGS (3)
  1. SERETIDE [Suspect]
     Active Substance: FLUTICASONE PROPIONATE\SALMETEROL XINAFOATE
     Indication: ASTHMA
     Dosage: UNK(25/125 )
     Dates: start: 20180504
  2. FLIXOTIDE [Suspect]
     Active Substance: FLUTICASONE PROPIONATE
     Indication: ASTHMA
     Dosage: UNK(50)
  3. FLIXOTIDE [Suspect]
     Active Substance: FLUTICASONE PROPIONATE
     Dosage: UNK(125)

REACTIONS (3)
  - Product use in unapproved indication [Unknown]
  - Asthmatic crisis [Unknown]
  - Off label use [Unknown]

NARRATIVE: CASE EVENT DATE: 20180504
